FAERS Safety Report 6376049-9 (Version None)
Quarter: 2009Q3

REPORT INFORMATION
  Report Type: 
  Country: None (occurrence: None)
  Receive Date: 20090924
  Receipt Date: 20090917
  Transmission Date: 20100115
  Serious: Yes (Hospitalization)
  Sender: FDA-Public Use
  Company Number: PHEH2009US10456

PATIENT
  Sex: Male

DRUGS (15)
  1. AFINITOR [Suspect]
     Indication: RENAL CELL CARCINOMA
     Dosage: 10 MG, UNK
     Dates: start: 20090810, end: 20090916
  2. AFINITOR [Suspect]
     Dosage: 5 MG, UNK
     Dates: start: 20090917
  3. MAGIC MOUTHWASH [Concomitant]
  4. LOMOTIL [Concomitant]
  5. FLAGYL [Concomitant]
     Dosage: 500 MG, UNK
  6. CALCIUM [Concomitant]
  7. MAGNESIUM [Concomitant]
  8. ZINC [Concomitant]
  9. NAMENDA [Concomitant]
  10. SUPER B [Concomitant]
  11. CELEXA [Concomitant]
  12. DETROL [Concomitant]
  13. ANTIBIOTICS [Concomitant]
  14. IMODIUM [Concomitant]
  15. EXELON [Concomitant]

REACTIONS (10)
  - BLISTER [None]
  - BLOOD POTASSIUM DECREASED [None]
  - DECREASED APPETITE [None]
  - DIARRHOEA [None]
  - FAECES DISCOLOURED [None]
  - HALLUCINATION [None]
  - INCONTINENCE [None]
  - MENTAL STATUS CHANGES [None]
  - RED BLOOD CELL COUNT DECREASED [None]
  - WHITE BLOOD CELL COUNT DECREASED [None]
